FAERS Safety Report 20679330 (Version 1)
Quarter: 2022Q2

REPORT INFORMATION
  Report Type: Spontaneous
  Country: US (occurrence: None)
  Receive Date: 20220406
  Receipt Date: 20220406
  Transmission Date: 20220721
  Serious: Yes (Hospitalization, Other)
  Sender: FDA-Public Use
  Company Number: 2009BM02289

PATIENT
  Age: 897 Month
  Sex: Female
  Weight: 109.3 kg

DRUGS (12)
  1. BYETTA [Suspect]
     Active Substance: EXENATIDE
     Indication: Type 2 diabetes mellitus
     Dosage: 5 ?G, BID
     Route: 058
     Dates: start: 200702, end: 20071023
  2. BYETTA [Suspect]
     Active Substance: EXENATIDE
     Indication: Type 2 diabetes mellitus
     Dosage: 5 ?G, BID
     Route: 058
     Dates: start: 20071031, end: 200803
  3. BYDUREON BCISE [Suspect]
     Active Substance: EXENATIDE
     Indication: Type 2 diabetes mellitus
     Dosage: 5 ?G, BID
     Route: 058
     Dates: start: 200702, end: 20071023
  4. BYDUREON BCISE [Suspect]
     Active Substance: EXENATIDE
     Indication: Type 2 diabetes mellitus
     Dosage: 5 ?G, BID
     Route: 058
     Dates: start: 20071031, end: 200803
  5. EXENATIDE [Concomitant]
     Active Substance: EXENATIDE
  6. METFORMIN [Concomitant]
     Active Substance: METFORMIN HYDROCHLORIDE
     Indication: Type 2 diabetes mellitus
  7. LANTUS [Concomitant]
     Active Substance: INSULIN GLARGINE
     Indication: Type 2 diabetes mellitus
     Dosage: 20 IU, UNK
  8. DIOVAN [Concomitant]
     Active Substance: VALSARTAN
     Indication: Blood pressure measurement
     Dosage: 160 MG, QD
  9. LEVOTHYROXINE [Concomitant]
     Active Substance: LEVOTHYROXINE
     Indication: Thyroid disorder
     Dosage: .125 MG, QD
  10. XOPENEX [Concomitant]
     Active Substance: LEVALBUTEROL HYDROCHLORIDE
     Dosage: UNK UNK, PRN
  11. PULMICORT TURBUHALER [Concomitant]
     Active Substance: BUDESONIDE
     Dosage: UNK UNK, PRN
  12. MORPHINE [Concomitant]
     Active Substance: MORPHINE
     Indication: Back pain
     Dosage: UNK
     Route: 042

REACTIONS (18)
  - Back pain [Recovered/Resolved]
  - Blood glucose increased [Recovered/Resolved]
  - Mobility decreased [Recovered/Resolved]
  - Stress [Recovered/Resolved]
  - Feeling abnormal [Recovered/Resolved]
  - Mental impairment [Recovered/Resolved]
  - Paraesthesia oral [Recovered/Resolved]
  - Muscular weakness [Recovered/Resolved]
  - Injection site haemorrhage [Recovered/Resolved]
  - Weight decreased [Recovered/Resolved]
  - Headache [Recovered/Resolved]
  - Decreased appetite [Recovered/Resolved]
  - Nausea [Recovered/Resolved]
  - Vomiting [Recovered/Resolved]
  - Magnetic resonance imaging abnormal [Recovered/Resolved]
  - Product dose omission issue [Recovered/Resolved]
  - Device delivery system issue [Recovered/Resolved]
  - Device leakage [Recovered/Resolved]

NARRATIVE: CASE EVENT DATE: 20070601
